FAERS Safety Report 8384598-7 (Version None)
Quarter: 2012Q2

REPORT INFORMATION
  Report Type: 
  Country: None (occurrence: None)
  Receive Date: 20120524
  Receipt Date: 20120515
  Transmission Date: 20120825
  Serious: No
  Sender: FDA-Public Use
  Company Number: US-B.I. PHARMACEUTICALS,INC./RIDGEFIELD-2012-BP-09255BP

PATIENT
  Sex: Male
  Weight: 72.57 kg

DRUGS (18)
  1. PRADAXA [Suspect]
     Indication: ATRIAL FIBRILLATION
     Dosage: 300 MG
     Route: 048
     Dates: start: 20110915, end: 20111214
  2. COUMADIN [Concomitant]
     Route: 048
  3. ALDACTONE [Concomitant]
     Dosage: 50 MG
     Route: 048
  4. MIRAPEX [Concomitant]
     Dosage: 0.125 MG
     Route: 048
  5. NEILMED SINUS MED COMPLETE [Concomitant]
  6. KLOR-CON M20 [Concomitant]
     Dosage: 60 MEQ
     Route: 048
  7. PROAIR HFA [Concomitant]
     Indication: DYSPNOEA
     Route: 055
  8. QVAR 40 [Concomitant]
     Dosage: 2 PUF
     Route: 055
  9. LOPRESSOR [Concomitant]
     Dosage: 100 MG
     Route: 048
  10. LASIX [Concomitant]
     Route: 048
  11. DITROPAN [Concomitant]
     Dosage: 10 MG
     Route: 048
  12. REFRESH TEARS [Concomitant]
     Indication: DRY EYE
  13. FOSAMAX [Concomitant]
     Route: 048
  14. ZOCOR [Concomitant]
     Indication: BLOOD CHOLESTEROL ABNORMAL
     Dosage: 20 MG
     Route: 048
  15. BENZONATATE [Concomitant]
     Indication: COUGH
     Route: 048
  16. SENNA-MINT WAF [Concomitant]
     Indication: CONSTIPATION
     Route: 048
  17. PRADAXA [Suspect]
     Dosage: 150 MG
     Route: 048
     Dates: start: 20120101, end: 20120401
  18. LEVOTHROID [Concomitant]
     Route: 048

REACTIONS (3)
  - MENTAL STATUS CHANGES [None]
  - ABDOMINAL DISCOMFORT [None]
  - APHASIA [None]
